FAERS Safety Report 6388366-7 (Version None)
Quarter: 2009Q4

REPORT INFORMATION
  Report Type: 
  Country: None (occurrence: None)
  Receive Date: 20091005
  Receipt Date: 20090928
  Transmission Date: 20100525
  Serious: Yes (Hospitalization)
  Sender: FDA-Public Use
  Company Number: US-ELI_LILLY_AND_COMPANY-US200909006324

PATIENT
  Sex: Female

DRUGS (5)
  1. HUMALOG MIX 75/25 [Suspect]
     Dosage: 40 U, EACH MORNING
     Dates: start: 20090901
  2. HUMALOG MIX 75/25 [Suspect]
     Dosage: 32 U, EACH EVENING
     Dates: start: 20090901
  3. HUMALOG MIX 75/25 [Suspect]
     Dosage: 45 U, EACH MORNING
     Dates: start: 20090901
  4. SYNTHROID [Concomitant]
     Indication: THYROID DISORDER
  5. INSULIN [Concomitant]
     Dates: end: 20090901

REACTIONS (4)
  - CARDIAC DISORDER [None]
  - CARDIAC VALVE DISEASE [None]
  - FATIGUE [None]
  - REACTION TO AZO-DYES [None]
